FAERS Safety Report 15428148 (Version 1)
Quarter: 2018Q3

REPORT INFORMATION
  Report Type: Spontaneous
  Country: CH (occurrence: CH)
  Receive Date: 20180926
  Receipt Date: 20180926
  Transmission Date: 20181010
  Serious: Yes (Other)
  Sender: FDA-Public Use
  Company Number: CH-ALEXION PHARMACEUTICALS INC.-A201812347

PATIENT
  Age: 55 Year
  Sex: Male

DRUGS (3)
  1. SOLIRIS [Suspect]
     Active Substance: ECULIZUMAB
     Indication: PAROXYSMAL NOCTURNAL HAEMOGLOBINURIA
     Dosage: UNK
     Route: 065
  2. SOLIRIS [Suspect]
     Active Substance: ECULIZUMAB
     Indication: OFF LABEL USE
  3. SOLIRIS [Suspect]
     Active Substance: ECULIZUMAB
     Indication: PLASMA CELL MYELOMA
     Dosage: 900 MG, UNK
     Route: 065

REACTIONS (7)
  - Hypertension [Unknown]
  - Hyperglycaemia [Unknown]
  - Muscle spasms [Unknown]
  - Off label use [Unknown]
  - Plasma cell myeloma [Unknown]
  - Back pain [Unknown]
  - Pyrexia [Unknown]
